FAERS Safety Report 9530677 (Version 2)
Quarter: 2013Q4

REPORT INFORMATION
  Report Type: Spontaneous
  Country: AR (occurrence: AR)
  Receive Date: 20130918
  Receipt Date: 20131011
  Transmission Date: 20140711
  Serious: Yes (Hospitalization)
  Sender: FDA-Public Use
  Company Number: AR-PFIZER INC-2013264068

PATIENT
  Age: 33 Year
  Sex: Female

DRUGS (2)
  1. SUNITINIB MALATE [Suspect]
     Indication: RENAL CANCER
     Dosage: 50 MG, 1X/DAY, 4 WEEK ON/2 WEEK OFF
  2. NEXAVAR [Suspect]
     Indication: RENAL CANCER
     Dosage: UNK

REACTIONS (5)
  - Haemoptysis [Not Recovered/Not Resolved]
  - Drug intolerance [Recovered/Resolved]
  - Gastrointestinal disorder [Recovered/Resolved]
  - Disease progression [Unknown]
  - Renal cancer [Unknown]
